FAERS Safety Report 22133106 (Version 1)
Quarter: 2023Q1

REPORT INFORMATION
  Report Type: Report from Study
  Country: US (occurrence: US)
  Receive Date: 20230324
  Receipt Date: 20230324
  Transmission Date: 20230418
  Serious: Yes (Hospitalization)
  Sender: FDA-Public Use
  Company Number: US-ABBVIE-4698003

PATIENT
  Sex: Female

DRUGS (1)
  1. RINVOQ [Suspect]
     Active Substance: UPADACITINIB
     Indication: Colitis ulcerative
     Route: 048
     Dates: start: 20230211

REACTIONS (11)
  - Dyspnoea [Not Recovered/Not Resolved]
  - Gingival pain [Recovered/Resolved]
  - Dysgeusia [Not Recovered/Not Resolved]
  - Acne [Not Recovered/Not Resolved]
  - Paraesthesia oral [Not Recovered/Not Resolved]
  - Fatigue [Not Recovered/Not Resolved]
  - Dizziness [Not Recovered/Not Resolved]
  - Chest discomfort [Unknown]
  - Parotid gland enlargement [Recovering/Resolving]
  - Salivary gland pain [Recovering/Resolving]
  - Toothache [Recovered/Resolved]

NARRATIVE: CASE EVENT DATE: 20230101
